FAERS Safety Report 7024135-2 (Version None)
Quarter: 2010Q3

REPORT INFORMATION
  Report Type: 
  Country: None (occurrence: None)
  Receive Date: 20100929
  Receipt Date: 20100914
  Transmission Date: 20110219
  Serious: Yes (Other)
  Sender: FDA-Public Use
  Company Number: TRP_07263_2010

PATIENT

DRUGS (3)
  1. AMPHOTERICIN B [Suspect]
     Indication: MENINGITIS CRYPTOCOCCAL
     Dosage: (6 MG/KG PER DAY INTRAVENOUS
     Route: 042
  2. AMBISOME [Suspect]
     Dosage: (3 MG/KG PER DAY)
  3. FUNGIZONE [Suspect]
     Indication: MENINGITIS CRYPTOCOCCAL
     Dosage: (0.7 MG/KG PER DAY INTRAVENOUS
     Route: 042

REACTIONS (5)
  - ANAEMIA [None]
  - BLOOD POTASSIUM DECREASED [None]
  - CRYPTOCOCCOSIS [None]
  - DRUG TOXICITY [None]
  - NEPHROPATHY TOXIC [None]
